FAERS Safety Report 23488866 (Version 1)
Quarter: 2024Q1

REPORT INFORMATION
  Report Type: Spontaneous
  Country: CN (occurrence: CN)
  Receive Date: 20240206
  Receipt Date: 20240206
  Transmission Date: 20240410
  Serious: Yes (Life-Threatening)
  Sender: FDA-Public Use
  Company Number: CN-FreseniusKabi-FK202401871

PATIENT
  Age: 43 Year
  Sex: Female
  Weight: 66 kg

DRUGS (12)
  1. DEXTROSE [Suspect]
     Active Substance: DEXTROSE\DEXTROSE MONOHYDRATE
     Indication: Nutritional supplementation
     Dosage: FORM: INJECTION?ROUTE: INTRAVENOUS DRIP
     Dates: start: 20240103, end: 20240103
  2. DEXTROSE [Suspect]
     Active Substance: DEXTROSE\DEXTROSE MONOHYDRATE
     Dosage: FORM: INJECTION?ROUTE: INTRAVENOUS DRIP
     Dates: start: 20231228, end: 20231230
  3. VITAMINS [Suspect]
     Active Substance: VITAMINS
     Indication: Nutritional supplementation
     Dosage: FORM: INJECTION?ROUTE: INTRAVENOUS DRIP
     Dates: start: 20240103, end: 20240103
  4. VITAMINS [Suspect]
     Active Substance: VITAMINS
     Dosage: FORM: INJECTION?ROUTE: INTRAVENOUS DRIP
     Dates: start: 20231228, end: 20231230
  5. ERGOCALCIFEROL\PHYTONADIONE\RETINOL\TOCOPHEROL [Suspect]
     Active Substance: ERGOCALCIFEROL\PHYTONADIONE\RETINOL\TOCOPHEROL
     Indication: Nutritional supplementation
     Dosage: FORM: INJECTION?ROUTE: INTRAVENOUS DRIP
     Dates: start: 20240103, end: 20240103
  6. ERGOCALCIFEROL\PHYTONADIONE\RETINOL\TOCOPHEROL [Suspect]
     Active Substance: ERGOCALCIFEROL\PHYTONADIONE\RETINOL\TOCOPHEROL
     Dosage: FORM: INJECTION?ROUTE: INTRAVENOUS DRIP
     Dates: start: 20231228, end: 20231230
  7. AMINO ACIDS, SOURCE UNSPECIFIED [Suspect]
     Active Substance: AMINO ACIDS, SOURCE UNSPECIFIED
     Indication: Nutritional supplementation
     Dosage: FORM: INJECTION?ROUTE: INTRAVENOUS DRIP
     Dates: start: 20240103, end: 20240103
  8. AMINO ACIDS, SOURCE UNSPECIFIED [Suspect]
     Active Substance: AMINO ACIDS, SOURCE UNSPECIFIED
     Dosage: FORM: INJECTION?ROUTE: INTRAVENOUS DRIP
     Dates: start: 20231228, end: 20240130
  9. POTASSIUM CHLORIDE [Suspect]
     Active Substance: POTASSIUM CHLORIDE
     Indication: Nutritional supplementation
     Dosage: FORM: INJECTION?ROUTE: INTRAVENOUS DRIP
     Dates: start: 20240103, end: 20240103
  10. POTASSIUM CHLORIDE [Suspect]
     Active Substance: POTASSIUM CHLORIDE
     Dosage: FORM: INJECTION?ROUTE: INTRAVENOUS DRIP
     Dates: start: 20231228, end: 20231230
  11. FAT EMULSION NOS [Suspect]
     Active Substance: EGG PHOSPHOLIPIDS\SAFFLOWER OIL\SOYBEAN OIL
     Indication: Nutritional supplementation
     Dosage: FORM: INJECTION?ROUTE: INTRAVENOUS DRIP
     Dates: start: 20240103, end: 20240103
  12. FAT EMULSION NOS [Suspect]
     Active Substance: EGG PHOSPHOLIPIDS\SAFFLOWER OIL\SOYBEAN OIL
     Dosage: FORM: INJECTION?ROUTE: INTRAVENOUS DRIP
     Dates: start: 20231228, end: 20231230

REACTIONS (1)
  - Anaphylactic shock [Recovering/Resolving]

NARRATIVE: CASE EVENT DATE: 20240103
